FAERS Safety Report 4948237-7 (Version None)
Quarter: 2006Q1

REPORT INFORMATION
  Report Type: 
  Country: None (occurrence: None)
  Receive Date: 20060313
  Receipt Date: 20060228
  Transmission Date: 20060701
  Serious: Yes (Hospitalization)
  Sender: FDA-Public Use
  Company Number: 2006RR-01721

PATIENT
  Age: 51 Year
  Sex: Female

DRUGS (24)
  1. VALPROIC ACID [Suspect]
  2. CLOZAPINE [Suspect]
     Dates: start: 20050701
  3. THYROXINE (THYROXINE) [Suspect]
  4. RANITIDINE [Suspect]
  5. HYDROCORTISONE [Suspect]
  6. CIPROFLOXACIN [Suspect]
  7. FLUCONAZOLE [Suspect]
  8. FENTANYL [Suspect]
  9. ACETAMINOPHEN [Suspect]
  10. AMISULPRIDE (AMISULPRIDE) [Concomitant]
  11. LITHIUM [Concomitant]
  12. LACTULOSE [Concomitant]
  13. ENOXAPARIN SODIUM [Concomitant]
  14. PROPOFOL [Concomitant]
  15. MIDAZOLAM HYDROCHLORIDE [Concomitant]
  16. NOREPINEPHRINE [Concomitant]
  17. POTASSIUM [Concomitant]
  18. LEVOTHYROXINE SODIUM [Concomitant]
  19. VALPROIC ACID [Concomitant]
  20. FENTANYL [Concomitant]
  21. FLUCONAZOLE [Concomitant]
  22. CIPROFLOXACIN [Concomitant]
  23. HYDROCORTISONE [Concomitant]
  24. RANITIDINE [Concomitant]

REACTIONS (1)
  - LOSS OF CONSCIOUSNESS [None]
